FAERS Safety Report 8465524-9 (Version None)
Quarter: 2012Q2

REPORT INFORMATION
  Report Type: 
  Country: None (occurrence: None)
  Receive Date: 20120626
  Receipt Date: 20120619
  Transmission Date: 20120825
  Serious: Yes (Hospitalization)
  Sender: FDA-Public Use
  Company Number: US-BAYER-2012-062359

PATIENT
  Age: 25 Year
  Sex: Female
  Weight: 53.968 kg

DRUGS (5)
  1. CETIRIZINE HCL AND PSEUDOEPHEDRINE [Concomitant]
     Indication: ACUTE SINUSITIS
     Dosage: 50MG-120MG, 1 TAB, 2 TIMES A DAY
     Route: 048
  2. AZITHROMYCIN [Concomitant]
     Indication: ACUTE SINUSITIS
     Dosage: 500 MG, QD, 3 DAYS
     Route: 048
  3. CELESTONE [Concomitant]
     Indication: ACUTE SINUSITIS
     Dosage: 2CC
     Route: 030
     Dates: start: 20111202
  4. DROSPIRENONE AND ETHINYL ESTRADIOL [Suspect]
  5. YAZ [Suspect]
     Indication: CONTRACEPTION
     Dosage: UNK

REACTIONS (1)
  - DEEP VEIN THROMBOSIS [None]
